FAERS Safety Report 20199028 (Version 5)
Quarter: 2023Q4

REPORT INFORMATION
  Report Type: Report from Study
  Country: US (occurrence: US)
  Receive Date: 20211217
  Receipt Date: 20231006
  Transmission Date: 20240109
  Serious: No
  Sender: FDA-Public Use
  Company Number: US-KYOWAKIRIN-2021BKK021074

PATIENT

DRUGS (19)
  1. CRYSVITA [Suspect]
     Active Substance: BUROSUMAB-TWZA
     Indication: Hereditary hypophosphataemic rickets
     Dosage: 70 MG (COMBINED WITH TWO INJECTIONS OF 30 MG/ML TO ACHIEVE TOTAL DOSE OF 70MG), EVERY 28 DAYS
     Route: 058
     Dates: start: 20190528
  2. CRYSVITA [Suspect]
     Active Substance: BUROSUMAB-TWZA
     Dosage: 70 MG (COMBINED WITH TWO INJECTIONS OF 30 MG/ML TO ACHIEVE TOTAL DOSE OF 70MG), EVERY 28 DAYS
     Route: 058
  3. CRYSVITA [Suspect]
     Active Substance: BUROSUMAB-TWZA
     Indication: Hereditary hypophosphataemic rickets
     Dosage: 80 MG (1X/4 WEEKS)
     Route: 058
     Dates: start: 20190508
  4. CRYSVITA [Suspect]
     Active Substance: BUROSUMAB-TWZA
     Dosage: 70 MG (COMBINED WITH ONE INJECTION OF 10 MG/ML TO ACHIEVE TOTAL DOSE OF 70MG), EVERY 28 DAYS
     Route: 058
     Dates: start: 20190528
  5. CRYSVITA [Suspect]
     Active Substance: BUROSUMAB-TWZA
     Dosage: 70 MG (COMBINED WITH ONE INJECTION OF 10 MG/ML TO ACHIEVE TOTAL DOSE OF 70MG), EVERY 28 DAYS
     Route: 058
  6. CRYSVITA [Suspect]
     Active Substance: BUROSUMAB-TWZA
     Dosage: 80 MG (COMBINED WITH ONE INJECTIONS OF 20 MG/ML TO ACHIEVE TOTAL DOSE OF 80 MG), EVERY 28 DAYS
     Route: 058
  7. CRYSVITA [Suspect]
     Active Substance: BUROSUMAB-TWZA
     Dosage: 90 MG, 1X/4 WEEKS
     Route: 058
     Dates: start: 20230113
  8. CRYSVITA [Suspect]
     Active Substance: BUROSUMAB-TWZA
     Indication: Hereditary hypophosphataemic rickets
     Dosage: 80 MG (COMBINED WITH TWO INJECTIONS OF 30 MG/ML TO ACHIEVE TOTAL DOSE OF 80 MG), EVERY 28 DAYS
     Route: 058
  9. CRYSVITA [Suspect]
     Active Substance: BUROSUMAB-TWZA
     Dosage: 80 MG (1X/4 WEEKS)
     Route: 058
     Dates: start: 20190508
  10. CRYSVITA [Concomitant]
     Active Substance: BUROSUMAB-TWZA
     Indication: Product used for unknown indication
     Dosage: UNK
     Route: 065
  11. TESTOSTERONE [Concomitant]
     Active Substance: TESTOSTERONE
     Indication: Product used for unknown indication
     Dosage: UNK
     Route: 065
  12. SUBOXONE [Concomitant]
     Active Substance: BUPRENORPHINE HYDROCHLORIDE\NALOXONE HYDROCHLORIDE
     Indication: Product used for unknown indication
     Dosage: UNK
     Route: 065
  13. FLONASE [Concomitant]
     Active Substance: FLUTICASONE PROPIONATE
     Indication: Product used for unknown indication
     Dosage: UNK
     Route: 065
  14. IBUPROFEN [Concomitant]
     Active Substance: IBUPROFEN
     Indication: Product used for unknown indication
     Dosage: UNK
     Route: 065
  15. LACTULOSE [Concomitant]
     Active Substance: LACTULOSE
     Indication: Product used for unknown indication
     Dosage: UNK
     Route: 065
  16. DICLOFENAC [Concomitant]
     Active Substance: DICLOFENAC
     Indication: Product used for unknown indication
     Dosage: UNK
     Route: 065
  17. AMITIZA [Concomitant]
     Active Substance: LUBIPROSTONE
     Indication: Product used for unknown indication
     Dosage: UNK
     Route: 065
  18. METOPROLOL SUCCINATE [Concomitant]
     Active Substance: METOPROLOL SUCCINATE
     Indication: Product used for unknown indication
     Dosage: UNK(ER)
     Route: 065
  19. NARCAN [Concomitant]
     Active Substance: NALOXONE HYDROCHLORIDE
     Indication: Product used for unknown indication
     Dosage: UNK
     Route: 065

REACTIONS (7)
  - Trichorrhexis [Unknown]
  - Alopecia [Not Recovered/Not Resolved]
  - Dry skin [Unknown]
  - Onychoclasis [Unknown]
  - Hair texture abnormal [Not Recovered/Not Resolved]
  - Dry skin [Unknown]
  - Blood alkaline phosphatase increased [Unknown]

NARRATIVE: CASE EVENT DATE: 20230515
